FAERS Safety Report 4518441-0 (Version None)
Quarter: 2004Q4

REPORT INFORMATION
  Report Type: 
  Country: None (occurrence: None)
  Receive Date: 20041202
  Receipt Date: 20041123
  Transmission Date: 20050328
  Serious: Yes (Hospitalization, Other)
  Sender: FDA-Public Use
  Company Number: FRWYE225023NOV04

PATIENT
  Age: 48 Year
  Sex: Male

DRUGS (3)
  1. SOPROL (BISOPROLOL, TABLET, 0) [Suspect]
     Indication: HYPERTENSION
     Dosage: 5 MG 1X PER 1 DAY ORAL
     Route: 048
  2. ODRIK (TRANDOLAPRIL, , 0) [Suspect]
     Indication: HYPERTENSION
     Dosage: 2 MG 1X PER 1 DAY ORAL
     Route: 048
  3. PRACTAZIN (ALTIZIDE/SPIRONOLACTONE, , 0) [Suspect]
     Dosage: 1 TABLET 1X PER 1 DAY ORAL
     Route: 048

REACTIONS (5)
  - BRADYCARDIA [None]
  - HEAD INJURY [None]
  - LOSS OF CONSCIOUSNESS [None]
  - MALAISE [None]
  - ORTHOSTATIC HYPOTENSION [None]
